FAERS Safety Report 7795152-X (Version None)
Quarter: 2011Q4

REPORT INFORMATION
  Report Type: 
  Country: None (occurrence: None)
  Receive Date: 20111004
  Receipt Date: 20110927
  Transmission Date: 20120403
  Serious: Yes (Other)
  Sender: FDA-Public Use
  Company Number: US-ASTRAZENECA-2011SE58169

PATIENT
  Sex: Male

DRUGS (1)
  1. SEROQUEL [Suspect]
     Route: 048
     Dates: start: 20100921

REACTIONS (4)
  - ADVERSE DRUG REACTION [None]
  - SHOCK [None]
  - OFF LABEL USE [None]
  - TARDIVE DYSKINESIA [None]
